FAERS Safety Report 8923739 (Version 1)
Quarter: 2012Q4

REPORT INFORMATION
  Report Type: 
  Country: US (occurrence: US)
  Receive Date: 20121126
  Receipt Date: 20121126
  Transmission Date: 20130627
  Serious: Yes (Hospitalization)
  Sender: FDA-Public Use
  Company Number: US-BAYER-2012-121843

PATIENT
  Age: 50 Year
  Sex: Female
  Weight: 112.5 kg

DRUGS (6)
  1. YAZ [Suspect]
  2. PREVACID [Concomitant]
     Dosage: 30 mg, UNK
  3. TUMS [CALCIUM CARBONATE] [Concomitant]
  4. MOTRIN [Concomitant]
  5. NORVASC [Concomitant]
     Indication: BLOOD PRESSURE ABNORMAL
     Dosage: 5 mg, UNK
  6. METOPROLOL [Concomitant]
     Indication: BLOOD PRESSURE ABNORMAL

REACTIONS (2)
  - Pulmonary embolism [None]
  - Deep vein thrombosis [None]
